FAERS Safety Report 7100452-2 (Version None)
Quarter: 2010Q4

REPORT INFORMATION
  Report Type: 
  Country: None (occurrence: None)
  Receive Date: 20101113
  Receipt Date: 20100302
  Transmission Date: 20110411
  Serious: No
  Sender: FDA-Public Use
  Company Number: US-ALLERGAN-1001538US

PATIENT
  Age: 67 Year
  Sex: Female
  Weight: 50.794 kg

DRUGS (2)
  1. BOTOX COSMETIC [Suspect]
     Indication: SKIN WRINKLING
     Dosage: 20 UNITS, SINGLE
     Route: 030
     Dates: start: 20091230, end: 20091230
  2. BOTOX COSMETIC [Suspect]
     Dosage: 4 UNITS, SINGLE
     Route: 030
     Dates: start: 20100112, end: 20100112

REACTIONS (5)
  - DIPLOPIA [None]
  - EYELID PTOSIS [None]
  - INJECTION SITE OEDEMA [None]
  - SKIN TIGHTNESS [None]
  - VISION BLURRED [None]
